FAERS Safety Report 26196216 (Version 1)
Quarter: 2025Q4

REPORT INFORMATION
  Report Type: Report from Study
  Country: US (occurrence: US)
  Receive Date: 20251224
  Receipt Date: 20251224
  Transmission Date: 20260118
  Serious: Yes (Other)
  Sender: TAKEDA
  Company Number: US-TAKEDA-2025TUS080574

PATIENT
  Age: 77 Year
  Sex: Male

DRUGS (2)
  1. VEDOLIZUMAB [Suspect]
     Active Substance: VEDOLIZUMAB
     Indication: Product used for unknown indication
     Dosage: 108 MILLIGRAM, Q2WEEKS
     Dates: start: 202508
  2. VEDOLIZUMAB [Suspect]
     Active Substance: VEDOLIZUMAB

REACTIONS (11)
  - Hepatic cirrhosis [Unknown]
  - Contusion [Unknown]
  - Gastrointestinal wall thickening [Unknown]
  - Mesenteric thickening [Unknown]
  - Splenomegaly [Unknown]
  - Diarrhoea [Unknown]
  - Faecal volume decreased [Unknown]
  - Increased tendency to bruise [Unknown]
  - Weight increased [Unknown]
  - Product dose omission issue [Unknown]
  - Constipation [Unknown]
